FAERS Safety Report 4733593-5 (Version None)
Quarter: 2005Q3

REPORT INFORMATION
  Report Type: 
  Country: None (occurrence: None)
  Receive Date: 20050729
  Receipt Date: 20050720
  Transmission Date: 20060218
  Serious: Yes (Other)
  Sender: FDA-Public Use
  Company Number: 2005-06-0945

PATIENT
  Age: 52 Year
  Sex: Male

DRUGS (4)
  1. PEG-INTRON [Suspect]
     Indication: HEPATITIS C
     Dosage: 150 MCG QWK SUBCUTANEOUS
     Route: 058
     Dates: start: 20040806, end: 20050323
  2. REBETOL [Suspect]
     Indication: HEPATITIS C
     Dosage: 600 MG BID ORAL
     Route: 048
     Dates: start: 20040806, end: 20050323
  3. AMARYL [Concomitant]
  4. METFOREM [Concomitant]

REACTIONS (2)
  - HAEMOGLOBIN DECREASED [None]
  - PULMONARY FIBROSIS [None]
